FAERS Safety Report 7154229-2 (Version None)
Quarter: 2010Q4

REPORT INFORMATION
  Report Type: 
  Country: None (occurrence: None)
  Receive Date: 20101213
  Receipt Date: 20101206
  Transmission Date: 20110411
  Serious: Yes (Other)
  Sender: FDA-Public Use
  Company Number: US-US-EMD SERONO, INC.-7031103

PATIENT
  Sex: Male

DRUGS (3)
  1. REBIF [Suspect]
     Indication: MULTIPLE SCLEROSIS
     Route: 058
     Dates: start: 20070606
  2. UNSPECIFIED MEDICATION TO GIVE MORE STABILITY IN LEGS [Concomitant]
  3. SLEEP MEDICATION [Concomitant]

REACTIONS (3)
  - HEADACHE [None]
  - SUICIDAL IDEATION [None]
  - WEIGHT DECREASED [None]
